FAERS Safety Report 10659766 (Version 3)
Quarter: 2015Q1

REPORT INFORMATION
  Report Type: Spontaneous
  Country: US (occurrence: US)
  Receive Date: 20141217
  Receipt Date: 20150309
  Transmission Date: 20150720
  Serious: Yes (Hospitalization, Disabling, Other)
  Sender: FDA-Public Use
  Company Number: US-009507513-0807USA01650

PATIENT
  Sex: Female

DRUGS (5)
  1. FOSAMAX [Suspect]
     Active Substance: ALENDRONATE SODIUM
     Dosage: UNK
     Route: 048
     Dates: start: 20090304
  2. BONIVA [Suspect]
     Active Substance: IBANDRONATE SODIUM
     Indication: OSTEOPOROSIS
     Dates: start: 2005
  3. HORMONES (UNSPECIFIED) [Concomitant]
     Active Substance: UNSPECIFIED INGREDIENT
     Dates: start: 1998
  4. FOSAMAX [Suspect]
     Active Substance: ALENDRONATE SODIUM
     Indication: OSTEOPOROSIS
     Dosage: 70 MG, QW
     Route: 048
     Dates: start: 200106, end: 200203
  5. BONIVA [Suspect]
     Active Substance: IBANDRONATE SODIUM
     Dosage: 150 MG, QM
     Dates: start: 200609, end: 200706

REACTIONS (50)
  - Jaw disorder [Unknown]
  - Herpes zoster [Unknown]
  - Family stress [Unknown]
  - Insomnia [Not Recovered/Not Resolved]
  - Chest pain [Unknown]
  - Panic attack [Unknown]
  - Trigeminal neuralgia [Unknown]
  - Tension headache [Not Recovered/Not Resolved]
  - Face injury [Unknown]
  - Visual impairment [Unknown]
  - Drug hypersensitivity [Unknown]
  - Sleep disorder [Not Recovered/Not Resolved]
  - Dry mouth [Unknown]
  - Genital herpes [Unknown]
  - Bone density decreased [Unknown]
  - Migraine [Not Recovered/Not Resolved]
  - Ear pain [Unknown]
  - Sinusitis [Unknown]
  - Osteonecrosis of jaw [Not Recovered/Not Resolved]
  - Low turnover osteopathy [Unknown]
  - Pain in jaw [Not Recovered/Not Resolved]
  - Impaired healing [Unknown]
  - Temporomandibular joint syndrome [Not Recovered/Not Resolved]
  - Depression [Not Recovered/Not Resolved]
  - Asthenia [Unknown]
  - Osteopenia [Unknown]
  - Pain [Not Recovered/Not Resolved]
  - Dental caries [Unknown]
  - Tooth fracture [Unknown]
  - Drug ineffective [Unknown]
  - Sinusitis [Not Recovered/Not Resolved]
  - Oral herpes [Unknown]
  - Neoplasm [Unknown]
  - Anxiety [Unknown]
  - Bone loss [Unknown]
  - Headache [Not Recovered/Not Resolved]
  - Gastrooesophageal reflux disease [Unknown]
  - Smear cervix abnormal [Unknown]
  - Muscle spasms [Unknown]
  - Herpes virus infection [Unknown]
  - Chronic sinusitis [Not Recovered/Not Resolved]
  - Fatigue [Unknown]
  - Sinus disorder [Unknown]
  - Impaired healing [Unknown]
  - Tooth abscess [Unknown]
  - Nerve injury [Unknown]
  - Pulpitis dental [Not Recovered/Not Resolved]
  - Facial pain [Not Recovered/Not Resolved]
  - Osteomyelitis [Unknown]
  - General physical health deterioration [Unknown]

NARRATIVE: CASE EVENT DATE: 2001
